FAERS Safety Report 24709037 (Version 2)
Quarter: 2024Q4

REPORT INFORMATION
  Report Type: Spontaneous
  Country: US (occurrence: US)
  Receive Date: 20241208
  Receipt Date: 20241211
  Transmission Date: 20250115
  Serious: No
  Sender: SANOFI AVENTIS
  Company Number: US-SA-2024SA361062

PATIENT
  Age: 5 Year
  Sex: Male
  Weight: 20.45 kg

DRUGS (1)
  1. DUPIXENT [Suspect]
     Active Substance: DUPILUMAB
     Indication: Dermatitis atopic
     Dosage: 300 MG (1 PEN), Q4W
     Route: 058

REACTIONS (2)
  - Dermatitis atopic [Unknown]
  - Therapeutic response shortened [Unknown]

NARRATIVE: CASE EVENT DATE: 20241128
